FAERS Safety Report 16049540 (Version 1)
Quarter: 2019Q1

REPORT INFORMATION
  Report Type: Spontaneous
  Country: US (occurrence: US)
  Receive Date: 20190307
  Receipt Date: 20190307
  Transmission Date: 20190418
  Serious: No
  Sender: FDA-Public Use
  Company Number: US-PFIZER INC-2019087914

PATIENT
  Age: 52 Year
  Sex: Male
  Weight: 81.19 kg

DRUGS (1)
  1. CHANTIX [Suspect]
     Active Substance: VARENICLINE TARTRATE
     Indication: SMOKING CESSATION THERAPY
     Dosage: UNK

REACTIONS (5)
  - Anxiety [Unknown]
  - Nightmare [Unknown]
  - Memory impairment [Unknown]
  - Depression [Unknown]
  - Anger [Unknown]
